FAERS Safety Report 10372109 (Version 1)
Quarter: 2014Q3

REPORT INFORMATION
  Report Type: Spontaneous
  Country: US (occurrence: US)
  Receive Date: 20140808
  Receipt Date: 20140808
  Transmission Date: 20150326
  Serious: Yes (Other)
  Sender: FDA-Public Use
  Company Number: US-BRISTOL-MYERS SQUIBB COMPANY-21291836

PATIENT
  Age: 54 Year
  Sex: Male

DRUGS (8)
  1. LABETALOL [Concomitant]
     Active Substance: LABETALOL\LABETALOL HYDROCHLORIDE
  2. XARELTO [Suspect]
     Active Substance: RIVAROXABAN
  3. COLCRYS [Concomitant]
     Active Substance: COLCHICINE
  4. OMEPRAZOLE. [Concomitant]
     Active Substance: OMEPRAZOLE
  5. ELIQUIS [Suspect]
     Active Substance: APIXABAN
     Indication: THROMBOSIS PROPHYLAXIS
     Route: 048
     Dates: start: 201311
  6. PROBENECID. [Concomitant]
     Active Substance: PROBENECID
  7. BUDESONIDE. [Concomitant]
     Active Substance: BUDESONIDE
  8. ALLOPURINOL. [Concomitant]
     Active Substance: ALLOPURINOL

REACTIONS (1)
  - Vein collapse [Unknown]
